FAERS Safety Report 12574629 (Version 1)
Quarter: 2016Q3

REPORT INFORMATION
  Report Type: Spontaneous
  Country: US (occurrence: US)
  Receive Date: 20160720
  Receipt Date: 20160720
  Transmission Date: 20161109
  Serious: No
  Sender: FDA-Public Use
  Company Number: US-ASTELLAS-2015US021651

PATIENT
  Age: 54 Year
  Sex: Female

DRUGS (3)
  1. VESICARE [Suspect]
     Active Substance: SOLIFENACIN SUCCINATE
     Route: 048
  2. VESICARE [Suspect]
     Active Substance: SOLIFENACIN SUCCINATE
     Indication: INCONTINENCE
     Route: 048
  3. VESICARE [Suspect]
     Active Substance: SOLIFENACIN SUCCINATE
     Route: 048

REACTIONS (9)
  - Drug ineffective [Unknown]
  - Thirst [Unknown]
  - Dry mouth [Unknown]
  - Urinary incontinence [Unknown]
  - Tooth disorder [Unknown]
  - Throat irritation [Unknown]
  - Dyspepsia [Unknown]
  - Dry throat [Unknown]
  - Dental caries [Unknown]
